FAERS Safety Report 8461839-9 (Version None)
Quarter: 2012Q2

REPORT INFORMATION
  Report Type: 
  Country: None (occurrence: None)
  Receive Date: 20120625
  Receipt Date: 20120612
  Transmission Date: 20120825
  Serious: Yes (Other)
  Sender: FDA-Public Use
  Company Number: JP-ASTELLAS-2012US005632

PATIENT
  Sex: Female

DRUGS (21)
  1. GEMCITABINE HYDROCHLORIDE [Suspect]
     Dosage: 1000 MG, UID/QD
     Route: 041
     Dates: start: 20120126, end: 20120126
  2. GEMCITABINE HYDROCHLORIDE [Suspect]
     Dosage: 1000 MG, UID/QD
     Route: 041
     Dates: start: 20120222, end: 20120222
  3. LOXOPROFEN                         /00890702/ [Concomitant]
     Indication: PRODUCT USED FOR UNKNOWN INDICATION
     Dosage: 60 MG, UID/QD
     Route: 048
     Dates: end: 20120214
  4. LOXOPROFEN                         /00890702/ [Concomitant]
     Dosage: 240 MG, UID/QD
     Route: 048
     Dates: start: 20120423
  5. GEMCITABINE HYDROCHLORIDE [Suspect]
     Indication: ADENOCARCINOMA PANCREAS
     Dosage: 1000 MG, UID/QD
     Route: 041
     Dates: start: 20120119, end: 20120119
  6. GEMCITABINE HYDROCHLORIDE [Suspect]
     Dosage: 1000 MG, UID/QD
     Route: 041
     Dates: start: 20120328, end: 20120328
  7. GEMCITABINE HYDROCHLORIDE [Suspect]
     Dosage: 1000 MG, UID/QD
     Route: 041
     Dates: start: 20120416, end: 20120416
  8. GEMCITABINE HYDROCHLORIDE [Suspect]
     Dosage: 1000 MG, UID/QD
     Route: 041
     Dates: start: 20120202, end: 20120202
  9. GEMCITABINE HYDROCHLORIDE [Suspect]
     Dosage: 1000 MG, UID/QD
     Route: 041
     Dates: start: 20120215, end: 20120215
  10. GEMCITABINE HYDROCHLORIDE [Suspect]
     Dosage: 1000 MG, UID/QD
     Route: 041
     Dates: start: 20120229, end: 20120229
  11. GEMCITABINE HYDROCHLORIDE [Suspect]
     Dosage: 1000 MG, UID/QD
     Route: 041
     Dates: start: 20120423, end: 20120423
  12. LOXOPROFEN                         /00890702/ [Concomitant]
     Dosage: 180 MG, UID/QD
     Route: 048
     Dates: start: 20120215, end: 20120422
  13. LANSOPRAZOLE [Concomitant]
     Indication: PRODUCT USED FOR UNKNOWN INDICATION
     Dosage: UNK
     Route: 048
  14. GRANISETRON HYDROCHLORIDE [Concomitant]
     Indication: PRODUCT USED FOR UNKNOWN INDICATION
     Dosage: 1 MG, UID/QD
     Route: 041
  15. ERLOTINIB HYDROCHLORIDE [Suspect]
     Indication: ADENOCARCINOMA PANCREAS
     Dosage: 100 MG, UID/QD
     Route: 048
     Dates: start: 20120119
  16. GEMCITABINE HYDROCHLORIDE [Suspect]
     Dosage: 1000 MG, UID/QD
     Route: 041
     Dates: start: 20120314, end: 20120314
  17. GEMCITABINE HYDROCHLORIDE [Suspect]
     Dosage: 1000 MG, UID/QD
     Route: 041
     Dates: start: 20120409, end: 20120409
  18. GEMCITABINE HYDROCHLORIDE [Suspect]
     Dosage: 1000 MG, UID/QD
     Route: 041
     Dates: start: 20120321, end: 20120321
  19. DEPAS [Concomitant]
     Indication: INSOMNIA
     Dosage: UNK
     Route: 048
  20. DEXAMETHASONE SODIUM PHOSPHATE [Concomitant]
     Indication: PRODUCT USED FOR UNKNOWN INDICATION
     Dosage: 6.6 MG, UID/QD
     Route: 041
  21. ESTAZOLAM [Concomitant]
     Indication: INSOMNIA
     Dosage: UNK
     Route: 048

REACTIONS (13)
  - ASPARTATE AMINOTRANSFERASE INCREASED [None]
  - DERMATITIS ACNEIFORM [None]
  - HYPERGLYCAEMIA [None]
  - CONSTIPATION [None]
  - NEUTROPHIL COUNT DECREASED [None]
  - THROMBOSIS PROPHYLAXIS [None]
  - WHITE BLOOD CELL COUNT DECREASED [None]
  - PLATELET COUNT DECREASED [None]
  - ANAEMIA [None]
  - STOMATITIS [None]
  - ALOPECIA [None]
  - ALANINE AMINOTRANSFERASE INCREASED [None]
  - PYREXIA [None]
